FAERS Safety Report 4483504-5 (Version None)
Quarter: 2004Q4

REPORT INFORMATION
  Report Type: 
  Country: None (occurrence: None)
  Receive Date: 20041019
  Receipt Date: 20041019
  Transmission Date: 20050328
  Serious: Yes (Life-Threatening, Hospitalization, Disabling)
  Sender: FDA-Public Use
  Company Number: None

PATIENT
  Age: 20 Year
  Sex: Female
  Weight: 47.6277 kg

DRUGS (1)
  1. ORTHO TRI-CYCLEN LO [Suspect]
     Indication: DYSMENORRHOEA
     Dates: start: 20031015, end: 20040815

REACTIONS (11)
  - ANXIETY [None]
  - DEPRESSION [None]
  - FATIGUE [None]
  - IMMUNOSUPPRESSION [None]
  - INDIFFERENCE [None]
  - INFECTIOUS MONONUCLEOSIS [None]
  - INFLUENZA [None]
  - MALAISE [None]
  - NASOPHARYNGITIS [None]
  - THINKING ABNORMAL [None]
  - VIRAL INFECTION [None]
